FAERS Safety Report 8144401-7 (Version None)
Quarter: 2012Q1

REPORT INFORMATION
  Report Type: 
  Country: None (occurrence: None)
  Receive Date: 20120214
  Receipt Date: 20120202
  Transmission Date: 20120608
  Serious: Yes (Other)
  Sender: FDA-Public Use
  Company Number: 1183718

PATIENT
  Age: 78 Year
  Sex: Female
  Weight: 59.2 kg

DRUGS (3)
  1. SODIUM CHLORIDE 0.9% [Concomitant]
  2. CARBOPLATIN [Suspect]
     Indication: MESOTHELIOMA MALIGNANT
     Dosage: 440 MG, Q 21 DAYS, INTRAVENOUS (NOT OTHERWISE SPECIFIED)
     Route: 042
     Dates: start: 20120131, end: 20120131
  3. ALIMTA [Concomitant]

REACTIONS (2)
  - INFUSION SITE DISCOMFORT [None]
  - INFUSION SITE ERYTHEMA [None]
